FAERS Safety Report 8036425-5 (Version None)
Quarter: 2012Q1

REPORT INFORMATION
  Report Type: 
  Country: None (occurrence: None)
  Receive Date: 20120111
  Receipt Date: 20120110
  Transmission Date: 20120608
  Serious: Yes (Death, Other)
  Sender: FDA-Public Use
  Company Number: JP-B.I. PHARMACEUTICALS,INC./RIDGEFIELD-2012-BP-00498NB

PATIENT
  Age: 75 Year
  Sex: Male

DRUGS (2)
  1. PLETAL [Concomitant]
     Route: 065
  2. PRADAXA [Suspect]
     Indication: ATRIAL FIBRILLATION
     Dosage: 220 MG
     Route: 048

REACTIONS (2)
  - CARDIAC FAILURE [None]
  - DEATH [None]
